FAERS Safety Report 9489603 (Version 1)
Quarter: 2013Q3

REPORT INFORMATION
  Report Type: Spontaneous
  Country: GB (occurrence: GB)
  Receive Date: 20130829
  Receipt Date: 20130829
  Transmission Date: 20140515
  Serious: Yes (Death, Hospitalization)
  Sender: FDA-Public Use
  Company Number: GB-WATSON-2013-15268

PATIENT
  Sex: 0

DRUGS (2)
  1. DEXAMETHASONE (UNKNOWN) [Suspect]
     Indication: PRODUCT USED FOR UNKNOWN INDICATION
     Dosage: 16 MG, UNKNOWN
     Route: 065
     Dates: start: 20130603
  2. LANSOPRAZOLE (UNKNOWN) [Suspect]
     Indication: DYSPEPSIA
     Dosage: UNK, UNKNOWN
     Route: 065

REACTIONS (11)
  - Death [Fatal]
  - Large intestine perforation [Fatal]
  - Cushing^s syndrome [Fatal]
  - Delirium [Fatal]
  - Confusional state [Fatal]
  - Aphagia [Fatal]
  - Dyspepsia [Fatal]
  - Dysstasia [Fatal]
  - Gait disturbance [Fatal]
  - Malaise [Fatal]
  - Incoherent [Fatal]
